FAERS Safety Report 6749887-8 (Version None)
Quarter: 2010Q2

REPORT INFORMATION
  Report Type: 
  Country: None (occurrence: None)
  Receive Date: 20100601
  Receipt Date: 20100518
  Transmission Date: 20101027
  Serious: Yes (Hospitalization, Other)
  Sender: FDA-Public Use
  Company Number: US-ELI_LILLY_AND_COMPANY-US201003008208

PATIENT
  Sex: Female

DRUGS (2)
  1. FORTEO [Suspect]
     Dosage: UNK, UNK
  2. FORTEO [Suspect]
     Dates: start: 20100315

REACTIONS (4)
  - DURAL TEAR [None]
  - NASOPHARYNGITIS [None]
  - SURGERY [None]
  - URINARY TRACT INFECTION [None]
